FAERS Safety Report 8920048 (Version 1)
Quarter: 2012Q4

REPORT INFORMATION
  Report Type: 
  Country: US (occurrence: US)
  Receive Date: 20121121
  Receipt Date: 20121121
  Transmission Date: 20130627
  Serious: Yes (Hospitalization)
  Sender: FDA-Public Use
  Company Number: US-BRISTOL-MYERS SQUIBB COMPANY-16639056

PATIENT
  Sex: Male

DRUGS (2)
  1. AVALIDE [Suspect]
     Dosage: 1DF:300/12.5
  2. PLAVIX [Suspect]

REACTIONS (1)
  - Myocardial infarction [Unknown]
